FAERS Safety Report 9642767 (Version 1)
Quarter: 2013Q4

REPORT INFORMATION
  Report Type: Spontaneous
  Country: DE (occurrence: DE)
  Receive Date: 20131024
  Receipt Date: 20131024
  Transmission Date: 20140711
  Serious: Yes (Hospitalization)
  Sender: FDA-Public Use
  Company Number: DE-UCBSA-100956

PATIENT
  Age: 42 Year
  Sex: 0

DRUGS (7)
  1. LACOSAMIDE [Suspect]
     Indication: CONVULSION
     Dosage: 400 UNITES UNSPECIFIED- TAPERED OFF
  2. LEVETIRACETAM [Suspect]
     Indication: CONVULSION
     Dosage: 3000 UNITS
  3. LAMOTRIGINE [Concomitant]
     Indication: CONVULSION
     Dosage: 500 UNITS
  4. RTG [Concomitant]
     Indication: CONVULSION
     Dosage: 300 UNITS
  5. RTG [Concomitant]
     Indication: CONVULSION
     Dosage: 1100 UNITS
  6. CLOBAZAM [Concomitant]
     Indication: CONVULSION
     Dosage: 20MG/D
  7. ESLICARBAZEPINE [Concomitant]
     Indication: CONVULSION
     Dosage: 200 UNITS

REACTIONS (1)
  - Status epilepticus [Recovered/Resolved]
